FAERS Safety Report 22180154 (Version 2)
Quarter: 2023Q2

REPORT INFORMATION
  Report Type: Spontaneous
  Country: US (occurrence: US)
  Receive Date: 20230406
  Receipt Date: 20230529
  Transmission Date: 20230721
  Serious: Yes (Hospitalization)
  Sender: FDA-Public Use
  Company Number: US-BEH-2023157137

PATIENT
  Age: 49 Year
  Sex: Female

DRUGS (8)
  1. BERINERT [Suspect]
     Active Substance: HUMAN C1-ESTERASE INHIBITOR
     Indication: Hereditary angioedema
     Dosage: 1200 INTERNATIONAL UNIT, PRN
     Route: 042
     Dates: start: 20190221
  2. BERINERT [Suspect]
     Active Substance: HUMAN C1-ESTERASE INHIBITOR
     Indication: Hereditary angioedema
     Dosage: 1200 INTERNATIONAL UNIT, PRN
     Route: 042
     Dates: start: 20190221
  3. BERINERT [Suspect]
     Active Substance: HUMAN C1-ESTERASE INHIBITOR
     Dosage: 3 DOSES, PRN
     Route: 042
     Dates: start: 20230302
  4. BERINERT [Suspect]
     Active Substance: HUMAN C1-ESTERASE INHIBITOR
     Dosage: 3 DOSES, PRN
     Route: 042
     Dates: start: 20230302
  5. BERINERT [Suspect]
     Active Substance: HUMAN C1-ESTERASE INHIBITOR
     Dosage: 1200 INTERNATIONAL UNIT, PRN
     Route: 042
     Dates: start: 20190222
  6. BERINERT [Suspect]
     Active Substance: HUMAN C1-ESTERASE INHIBITOR
     Dosage: 1200 INTERNATIONAL UNIT, PRN
     Route: 042
     Dates: start: 20190222
  7. BERINERT [Suspect]
     Active Substance: HUMAN C1-ESTERASE INHIBITOR
     Dosage: 2 DOSES, PRN
     Route: 042
     Dates: start: 20230516
  8. BERINERT [Suspect]
     Active Substance: HUMAN C1-ESTERASE INHIBITOR
     Dosage: 2 DOSES, PRN
     Route: 042
     Dates: start: 20230516

REACTIONS (1)
  - Drug ineffective [Unknown]

NARRATIVE: CASE EVENT DATE: 20230302
